FAERS Safety Report 9089839 (Version 1)
Quarter: 2013Q1

REPORT INFORMATION
  Report Type: Report from Study
  Country: US (occurrence: US)
  Receive Date: 20130201
  Receipt Date: 20130201
  Transmission Date: 20140127
  Serious: Yes (Life-Threatening)
  Sender: FDA-Public Use
  Company Number: US-MERCK-1301USA011664

PATIENT
  Sex: 0

DRUGS (1)
  1. ZOLINZA [Suspect]
     Dosage: 100-400MG DAILY
     Route: 048

REACTIONS (1)
  - Neutropenia [Unknown]
